FAERS Safety Report 7249509-6 (Version None)
Quarter: 2011Q1

REPORT INFORMATION
  Report Type: 
  Country: None (occurrence: None)
  Receive Date: 20110128
  Receipt Date: 20101207
  Transmission Date: 20110831
  Serious: Yes (Hospitalization, Other)
  Sender: FDA-Public Use
  Company Number: US-BAYER-201026873NA

PATIENT
  Sex: Female
  Weight: 79.365 kg

DRUGS (5)
  1. YASMIN [Suspect]
     Indication: PRODUCT USED FOR UNKNOWN INDICATION
     Route: 048
     Dates: start: 20080429, end: 20080701
  2. GLUMETZA [Concomitant]
     Indication: WEIGHT CONTROL
  3. CYCLOBENZAPRINE [Concomitant]
     Dosage: 10 MG, UNK
  4. YAZ [Suspect]
     Indication: CONTRACEPTION
     Route: 048
     Dates: start: 20080429, end: 20080701
  5. GLUMETZA [Concomitant]
     Indication: BLOOD INSULIN ABNORMAL
     Dosage: 500 MG, BID

REACTIONS (5)
  - PAIN IN EXTREMITY [None]
  - OEDEMA PERIPHERAL [None]
  - EMOTIONAL DISTRESS [None]
  - TENDONITIS [None]
  - DEEP VEIN THROMBOSIS [None]
